FAERS Safety Report 9902095 (Version 3)
Quarter: 2014Q2

REPORT INFORMATION
  Report Type: Report from Study
  Country: AU (occurrence: AU)
  Receive Date: 20140217
  Receipt Date: 20140421
  Transmission Date: 20141212
  Serious: Yes (Hospitalization, Other)
  Sender: FDA-Public Use
  Company Number: PHHY2010AU095327

PATIENT
  Age: 82 Year
  Sex: Female

DRUGS (6)
  1. ACLASTA [Suspect]
     Dosage: 5 MG
     Route: 042
     Dates: start: 20090429
  2. ACLASTA [Suspect]
     Dosage: 5 MG
     Route: 042
     Dates: start: 20100325
  3. ACLASTA [Suspect]
     Dosage: 5 MG
     Route: 042
     Dates: start: 20110509
  4. ACLASTA [Suspect]
     Dosage: 5 MG
     Route: 042
     Dates: start: 20120514
  5. ASASANTIN [Concomitant]
     Indication: TRANSIENT ISCHAEMIC ATTACK
     Dosage: UNK UKN, BID
     Route: 048
     Dates: start: 20090907
  6. ASASANTIN [Concomitant]
     Indication: CEREBROVASCULAR ACCIDENT

REACTIONS (13)
  - Cerebrovascular accident [Recovered/Resolved]
  - Transient ischaemic attack [Recovered/Resolved]
  - Vascular dementia [Unknown]
  - Executive dysfunction [Unknown]
  - Angiopathy [Unknown]
  - Head injury [Unknown]
  - Circulatory collapse [Unknown]
  - Aphasia [Unknown]
  - Speech disorder [Unknown]
  - Nocturia [Unknown]
  - Hypercholesterolaemia [Unknown]
  - Memory impairment [Unknown]
  - Inappropriate schedule of drug administration [Unknown]
